FAERS Safety Report 7430864-9 (Version None)
Quarter: 2011Q2

REPORT INFORMATION
  Report Type: 
  Country: None (occurrence: None)
  Receive Date: 20110421
  Receipt Date: 20110418
  Transmission Date: 20111010
  Serious: Yes (Other)
  Sender: FDA-Public Use
  Company Number: US-PFIZER INC-2011085349

PATIENT
  Age: 15 Year
  Sex: Female

DRUGS (5)
  1. HYDROXYZINE PAMOATE [Suspect]
     Indication: ANXIETY
     Dosage: 25 MG, EVERY 8 HOURS AS NEEDED
     Route: 048
  2. DIPHENHYDRAMINE [Suspect]
     Route: 030
  3. HYDROXYZINE PAMOATE [Suspect]
     Dosage: 50 MG, EVERY 8 HOURS
     Route: 048
  4. DULOXETINE [Concomitant]
  5. SERTRALINE [Concomitant]

REACTIONS (1)
  - DRUG DEPENDENCE [None]
